FAERS Safety Report 5293749-2 (Version None)
Quarter: 2007Q2

REPORT INFORMATION
  Report Type: 
  Country: None (occurrence: None)
  Receive Date: 20070411
  Receipt Date: 20070330
  Transmission Date: 20071010
  Serious: Yes (Other)
  Sender: FDA-Public Use
  Company Number: FR-PFIZER INC-2007009608

PATIENT
  Sex: Female
  Weight: 127 kg

DRUGS (15)
  1. LYRICA [Suspect]
     Indication: DIABETIC NEUROPATHY
     Route: 048
     Dates: start: 20061204, end: 20070115
  2. LYRICA [Suspect]
     Indication: NEURALGIA
  3. FUROSEMIDE [Concomitant]
  4. NICORANDIL [Concomitant]
  5. NIFEDIPINE [Concomitant]
  6. SECTRAL [Concomitant]
  7. ATORVASTATIN CALCIUM [Concomitant]
  8. FLUINDIONE [Concomitant]
  9. TRINITRINE [Concomitant]
  10. COZAAR [Concomitant]
  11. VASTAREL [Concomitant]
  12. MEDIATOR [Concomitant]
  13. LANTUS [Concomitant]
  14. NOVORAPID [Concomitant]
  15. PARACETAMOL [Concomitant]

REACTIONS (2)
  - PALPITATIONS [None]
  - TACHYCARDIA [None]
